FAERS Safety Report 6318351-2 (Version None)
Quarter: 2009Q3

REPORT INFORMATION
  Report Type: 
  Country: None (occurrence: None)
  Receive Date: 20090820
  Receipt Date: 20090820
  Transmission Date: 20100115
  Serious: No
  Sender: FDA-Public Use
  Company Number: None

PATIENT
  Age: 86 Year
  Sex: Male
  Weight: 33.5208 kg

DRUGS (1)
  1. FUROSEMIDE [Suspect]
     Indication: DIURETIC THERAPY
     Dosage: 40MG BID PO
     Route: 048
     Dates: start: 20051026, end: 20090815

REACTIONS (2)
  - MENTAL STATUS CHANGES [None]
  - SYNCOPE [None]
